FAERS Safety Report 4843625-1 (Version None)
Quarter: 2005Q4

REPORT INFORMATION
  Report Type: 
  Country: None (occurrence: None)
  Receive Date: 20051202
  Receipt Date: 20051121
  Transmission Date: 20060501
  Serious: Yes (Hospitalization)
  Sender: FDA-Public Use
  Company Number: FR-JNJFOC-20051104833

PATIENT
  Age: 30 Year
  Sex: Female

DRUGS (4)
  1. LEUSTATIN [Suspect]
     Dosage: 5TH CYCLE
     Route: 042
  2. MINIRIN [Concomitant]
  3. LEVOTHYROX [Concomitant]
  4. HYDROCORTISONE [Concomitant]

REACTIONS (2)
  - RENAL FAILURE [None]
  - RENAL FAILURE ACUTE [None]
